FAERS Safety Report 11291887 (Version 1)
Quarter: 2015Q3

REPORT INFORMATION
  Report Type: Spontaneous
  Country: BR (occurrence: BR)
  Receive Date: 20150722
  Receipt Date: 20150722
  Transmission Date: 20151125
  Serious: Yes (Other)
  Sender: FDA-Public Use
  Company Number: BR-PFIZER INC-2015244489

PATIENT
  Age: 75 Year
  Sex: Female
  Weight: 51 kg

DRUGS (3)
  1. LOSARTAN. [Concomitant]
     Active Substance: LOSARTAN
     Indication: HYPERTENSION
     Dosage: 1 DF IN THE MORNING
     Dates: start: 2009
  2. CHAMPIX [Suspect]
     Active Substance: VARENICLINE TARTRATE
     Indication: SMOKING CESSATION THERAPY
     Dosage: 1 TABLET, DAILY
     Route: 048
     Dates: start: 2014, end: 2014
  3. DAFLON /01026201/ [Concomitant]
     Active Substance: DIOSMIN\HESPERIDIN
     Indication: VARICOSE VEIN
     Dosage: 50 MG, DAILY

REACTIONS (1)
  - Arterial occlusive disease [Not Recovered/Not Resolved]

NARRATIVE: CASE EVENT DATE: 201410
